FAERS Safety Report 16794725 (Version 4)
Quarter: 2019Q4

REPORT INFORMATION
  Report Type: Spontaneous
  Country: US (occurrence: US)
  Receive Date: 20190911
  Receipt Date: 20191127
  Transmission Date: 20200122
  Serious: No
  Sender: FDA-Public Use
  Company Number: US-PFIZER INC-2019387477

PATIENT
  Age: 74 Year
  Sex: Female

DRUGS (1)
  1. IBRANCE [Suspect]
     Active Substance: PALBOCICLIB
     Indication: BREAST CANCER FEMALE
     Dosage: 100 MG, UNK

REACTIONS (7)
  - Memory impairment [Unknown]
  - Fatigue [Unknown]
  - Visual impairment [Unknown]
  - Back pain [Unknown]
  - Alopecia [Unknown]
  - Muscle spasms [Unknown]
  - Back disorder [Unknown]
